FAERS Safety Report 9244758 (Version 3)
Quarter: 2013Q2

REPORT INFORMATION
  Report Type: Spontaneous
  Country: US (occurrence: US)
  Receive Date: 20130422
  Receipt Date: 20130527
  Transmission Date: 20140414
  Serious: Yes (Other)
  Sender: FDA-Public Use
  Company Number: PHEH2013US008585

PATIENT
  Sex: Female

DRUGS (8)
  1. DIOVAN [Suspect]
     Dates: start: 2005
  2. DIOVAN [Suspect]
  3. DIOVAN HCT [Suspect]
     Dosage: 1 DF (160 MG VALS AND 25 MG HCTZ), UNK
     Dates: start: 2005
  4. VALSARTAN [Suspect]
  5. BETA BLOCKING AGENTS [Concomitant]
  6. BISOPROLOL FUMARATE [Concomitant]
     Dosage: 5 MG, UNK
  7. PANTOPRAZOLE SODIUM [Concomitant]
     Dosage: 40 MG, UNK
  8. KLOR-CON [Concomitant]

REACTIONS (3)
  - Acoustic neuroma [Unknown]
  - Hypertension [Unknown]
  - Cough [Unknown]
